FAERS Safety Report 7718399-7 (Version None)
Quarter: 2011Q3

REPORT INFORMATION
  Report Type: 
  Country: None (occurrence: None)
  Receive Date: 20110830
  Receipt Date: 20110823
  Transmission Date: 20111222
  Serious: Yes (Hospitalization, Other)
  Sender: FDA-Public Use
  Company Number: PHHY2011BR43827

PATIENT
  Sex: Female

DRUGS (6)
  1. GALVUS MET [Suspect]
     Indication: DIABETES MELLITUS
     Dosage: 1000/50 MG
  2. INSULIN [Concomitant]
     Indication: DIABETES MELLITUS
     Dosage: 30 U, QD
  3. LAMOTRIGINE [Concomitant]
     Dosage: 50 MG, BID
     Dates: start: 20101201
  4. LEVOTHYROXINE SODIUM [Concomitant]
     Indication: THYROID DISORDER
     Dosage: 25 MG, QD
     Route: 048
  5. DIOVAN [Suspect]
     Indication: HYPERTENSION
     Dosage: 160 MG, UNK
  6. AMLODIPINE BESYLATE [Concomitant]
     Indication: BRAIN OEDEMA
     Dosage: 5 MG, QD
     Route: 048
     Dates: start: 20101201

REACTIONS (2)
  - BRAIN NEOPLASM BENIGN [None]
  - DEMENTIA ALZHEIMER'S TYPE [None]
